FAERS Safety Report 16631999 (Version 2)
Quarter: 2019Q3

REPORT INFORMATION
  Report Type: Spontaneous
  Country: AR (occurrence: AR)
  Receive Date: 20190725
  Receipt Date: 20190909
  Transmission Date: 20191004
  Serious: Yes (Hospitalization, Other)
  Sender: FDA-Public Use
  Company Number: AR-PFIZER INC-2019315287

PATIENT
  Age: 41 Year
  Sex: Female

DRUGS (1)
  1. IBRANCE [Suspect]
     Active Substance: PALBOCICLIB
     Indication: BREAST CANCER METASTATIC
     Dosage: 125 MG, CYCLIC (DAILY, 3X1 SCHEME)
     Dates: start: 20190612, end: 201907

REACTIONS (5)
  - Hip fracture [Unknown]
  - Hypercalcaemia [Unknown]
  - Confusional state [Unknown]
  - Anaemia [Unknown]
  - Hypophagia [Unknown]

NARRATIVE: CASE EVENT DATE: 201907
